FAERS Safety Report 15764958 (Version 1)
Quarter: 2018Q4

REPORT INFORMATION
  Report Type: Report from Study
  Country: CA (occurrence: CA)
  Receive Date: 20181227
  Receipt Date: 20181227
  Transmission Date: 20190205
  Serious: Yes (Other)
  Sender: FDA-Public Use
  Company Number: CA-SA-2018SA339593

PATIENT
  Age: 78 Year
  Sex: Female

DRUGS (24)
  1. CODEINE [Suspect]
     Active Substance: CODEINE
     Dosage: UNK
  2. HOLISTA OMEGA 3 [Concomitant]
     Dosage: UNK
  3. MINT PANTOPRAZOLE [Concomitant]
     Dosage: 1 DF, QD
  4. PREDNISONE. [Concomitant]
     Active Substance: PREDNISONE
     Dosage: 1 DF, QD
     Route: 048
  5. RAMIPRIL. [Suspect]
     Active Substance: RAMIPRIL
     Dosage: UNK
  6. XOLAIR [Suspect]
     Active Substance: OMALIZUMAB
     Indication: CHRONIC SPONTANEOUS URTICARIA
     Dosage: 300 MG
     Route: 058
  7. XOLAIR [Suspect]
     Active Substance: OMALIZUMAB
     Dosage: 150 MG
     Route: 058
  8. JAMP-DOCUSATE SODIUM [Concomitant]
     Indication: CONSTIPATION
     Dosage: 1 DF, TID
  9. EPIPEN [Concomitant]
     Active Substance: EPINEPHRINE
     Indication: HYPERSENSITIVITY
     Dosage: UNK
     Route: 058
  10. LOVENOX [Concomitant]
     Active Substance: ENOXAPARIN SODIUM
     Dosage: 1 DF, QD
  11. MINT-CIPROFLOXACIN [Concomitant]
     Active Substance: CIPROFLOXACIN
     Dosage: 1 DF, BID
     Route: 048
  12. TARO-WARFARIN [Concomitant]
     Active Substance: WARFARIN
     Dosage: 1 DF, QD
  13. MONTELUKAST SODIUM. [Suspect]
     Active Substance: MONTELUKAST SODIUM
     Dosage: 10 MG, QD
     Route: 048
  14. METRONIDAZOLE. [Concomitant]
     Active Substance: METRONIDAZOLE
     Dosage: 2 DF, TID
     Route: 048
  15. REACTINE [CETIRIZINE HYDROCHLORIDE] [Concomitant]
     Active Substance: CETIRIZINE HYDROCHLORIDE
     Dosage: 1 DF, QD
     Route: 048
  16. VOLTAREN [DICLOFENAC] [Concomitant]
     Active Substance: DICLOFENAC SODIUM
     Dosage: UNK
  17. AERIUS [EBASTINE] [Concomitant]
     Active Substance: EBASTINE
     Dosage: 1 DF, QD
     Route: 048
  18. AMLODIPINE [Concomitant]
     Active Substance: AMLODIPINE BESYLATE
     Dosage: 2 DF, QD
  19. JAMP VITAMIN D [Concomitant]
     Dosage: 1 DF, QW
  20. APO-PREDNISONE [Concomitant]
     Active Substance: PREDNISONE
     Dosage: 2 DF, QD
     Route: 048
  21. PULMICORT TURBUHALER [Concomitant]
     Active Substance: BUDESONIDE
     Dosage: 1 DF, BID
  22. RANITIDINE HYDROCHLORIDE. [Suspect]
     Active Substance: RANITIDINE HYDROCHLORIDE
     Indication: GASTRIC DISORDER
     Dosage: 150 MG, BID
     Route: 048
  23. AIROMIR [SALBUTAMOL SULFATE] [Concomitant]
     Dosage: 1 DF
     Route: 055
  24. ALENDRONATE [Concomitant]
     Active Substance: ALENDRONATE SODIUM
     Dosage: 1 DF, QW

REACTIONS (14)
  - Dysphagia [Recovered/Resolved]
  - Food allergy [Recovered/Resolved]
  - Paraesthesia oral [Recovered/Resolved]
  - Lip disorder [Recovered/Resolved]
  - Throat tightness [Recovered/Resolved]
  - Urticaria [Recovered/Resolved]
  - Blood pressure increased [Recovered/Resolved]
  - Eating disorder [Recovered/Resolved]
  - Lip swelling [Recovered/Resolved]
  - Swollen tongue [Recovered/Resolved]
  - Blood pressure systolic increased [Recovered/Resolved]
  - Sensitisation [Recovered/Resolved]
  - Hypersensitivity [Recovered/Resolved]
  - Dyspnoea [Recovered/Resolved]
